FAERS Safety Report 10559122 (Version 1)
Quarter: 2014Q4

REPORT INFORMATION
  Report Type: Spontaneous
  Country: US (occurrence: US)
  Receive Date: 20141103
  Receipt Date: 20141103
  Transmission Date: 20150529
  Serious: Yes (Other)
  Sender: FDA-Public Use
  Company Number: US-AMGEN-USASP2014083815

PATIENT
  Age: 48 Year
  Sex: Female
  Weight: 99 kg

DRUGS (2)
  1. LYRICA [Suspect]
     Active Substance: PREGABALIN
     Indication: FIBROMYALGIA
     Dosage: 100 MG, A DAY, 2 AT NIGHT
     Route: 065
  2. ENBREL [Suspect]
     Active Substance: ETANERCEPT
     Indication: CONNECTIVE TISSUE DISORDER
     Dosage: UNK
     Route: 065

REACTIONS (8)
  - Malaise [Unknown]
  - Fibromyalgia [Unknown]
  - Drug ineffective [Unknown]
  - Autoimmune disorder [Unknown]
  - Fatigue [Unknown]
  - Nausea [Unknown]
  - Withdrawal syndrome [Unknown]
  - Weight increased [Unknown]
